FAERS Safety Report 4908081-3 (Version None)
Quarter: 2006Q1

REPORT INFORMATION
  Report Type: 
  Country: None (occurrence: None)
  Receive Date: 20060113
  Receipt Date: 20050926
  Transmission Date: 20060701
  Serious: No
  Sender: FDA-Public Use
  Company Number: 2005SP003251

PATIENT
  Age: 77 Year
  Sex: Male
  Weight: 87.9978 kg

DRUGS (10)
  1. LUNESTA [Suspect]
     Dosage: 2 MG; HS; ORAL
     Route: 048
     Dates: start: 20050924, end: 20050101
  2. LAMISIL [Concomitant]
  3. RESTORIL [Concomitant]
  4. DARVOCET-N 50 [Concomitant]
  5. ROBAXIN [Concomitant]
  6. METHOCARBAMOL [Concomitant]
  7. NIACIN [Concomitant]
  8. CYANOCOBALMN [Concomitant]
  9. FOLIC AICD [Concomitant]
  10. MULTIVITAMIN [Concomitant]

REACTIONS (4)
  - LARYNGITIS [None]
  - MIDDLE INSOMNIA [None]
  - PRURITUS [None]
  - VISION BLURRED [None]
